FAERS Safety Report 5986133-7 (Version None)
Quarter: 2008Q4

REPORT INFORMATION
  Report Type: 
  Country: None (occurrence: None)
  Receive Date: 20081205
  Receipt Date: 20081205
  Transmission Date: 20090506
  Serious: Yes (Death)
  Sender: FDA-Public Use
  Company Number: None

PATIENT
  Sex: Female
  Weight: 56.6996 kg

DRUGS (1)
  1. FENTANYL [Suspect]
     Indication: ARTHRALGIA
     Dosage: PATCH EVERY 72 HOURS TRANSDERMAL
     Route: 062
     Dates: start: 20081025, end: 20081031

REACTIONS (1)
  - LETHARGY [None]
